FAERS Safety Report 25353927 (Version 1)
Quarter: 2025Q2

REPORT INFORMATION
  Report Type: Spontaneous
  Country: US (occurrence: US)
  Receive Date: 20250523
  Receipt Date: 20250523
  Transmission Date: 20250717
  Serious: No
  Sender: AMGEN
  Company Number: US-AMGEN-USASP2025100276

PATIENT
  Age: 65 Year
  Sex: Female

DRUGS (1)
  1. AIMOVIG [Suspect]
     Active Substance: ERENUMAB-AOOE
     Indication: Migraine
     Route: 065
     Dates: start: 2025, end: 2025

REACTIONS (5)
  - Tremor [Recovering/Resolving]
  - Anxiety [Recovering/Resolving]
  - Anxiety disorder due to a general medical condition [Unknown]
  - Discouragement [Unknown]
  - Malaise [Unknown]

NARRATIVE: CASE EVENT DATE: 20250101
